FAERS Safety Report 16394111 (Version 1)
Quarter: 2019Q3

REPORT INFORMATION
  Report Type: Spontaneous
  Country: US (occurrence: US)
  Receive Date: 20190603
  Receipt Date: 20190603
  Transmission Date: 20191004
  Serious: Yes (Hospitalization)
  Sender: FDA-Public Use
  Company Number: None

PATIENT
  Age: 71 Year
  Sex: Female
  Weight: 57 kg

DRUGS (8)
  1. IPILIMUMAB [Suspect]
     Active Substance: IPILIMUMAB
     Indication: RENAL CELL CARCINOMA
     Route: 041
     Dates: start: 20181227, end: 20190211
  2. EMLA [Concomitant]
     Active Substance: LIDOCAINE\PRILOCAINE
  3. ONDANSETRON [Concomitant]
     Active Substance: ONDANSETRON
  4. DOCUSATE [Concomitant]
     Active Substance: DOCUSATE
  5. PROTONIX [Concomitant]
     Active Substance: PANTOPRAZOLE SODIUM
  6. MULTIVITES [Concomitant]
  7. THYROID [Concomitant]
     Active Substance: LEVOTHYROXINE\LIOTHYRONINE
  8. VORTIOXETINE. [Concomitant]
     Active Substance: VORTIOXETINE

REACTIONS (1)
  - Hepatitis [None]

NARRATIVE: CASE EVENT DATE: 20190212
